FAERS Safety Report 12220469 (Version 1)
Quarter: 2016Q1

REPORT INFORMATION
  Report Type: Spontaneous
  Country: GB (occurrence: GB)
  Receive Date: 20160330
  Receipt Date: 20160330
  Transmission Date: 20160526
  Serious: Yes (Other)
  Sender: FDA-Public Use
  Company Number: GB-SUN PHARMACEUTICAL INDUSTRIES LTD-2016RR-113959

PATIENT
  Age: 11 Year
  Sex: Female

DRUGS (1)
  1. CODEINE [Suspect]
     Active Substance: CODEINE
     Indication: PRODUCT USED FOR UNKNOWN INDICATION
     Dosage: 60 MG, UNK
     Route: 065

REACTIONS (5)
  - Sensory disturbance [Unknown]
  - Incorrect dosage administered [Unknown]
  - Hyperventilation [Unknown]
  - Syncope [Unknown]
  - Drug administered to patient of inappropriate age [Unknown]
